FAERS Safety Report 20329191 (Version 1)
Quarter: 2022Q1

REPORT INFORMATION
  Report Type: Spontaneous
  Country: JP (occurrence: JP)
  Receive Date: 20220112
  Receipt Date: 20220112
  Transmission Date: 20220424
  Serious: Yes (Life-Threatening, Other)
  Sender: FDA-Public Use
  Company Number: JP-MLMSERVICE-20211231-3295010-1

PATIENT
  Age: 69 Year
  Sex: Female

DRUGS (2)
  1. GEMCITABINE HYDROCHLORIDE [Suspect]
     Active Substance: GEMCITABINE HYDROCHLORIDE
     Indication: Bladder transitional cell carcinoma stage II
     Dosage: 3000 MG/M2, CYCLICAL, ON DAYS 1, 8, AND 15 FOR EACH 28 DAYS
     Route: 065
  2. CISPLATIN [Suspect]
     Active Substance: CISPLATIN
     Indication: Bladder transitional cell carcinoma stage II
     Dosage: 70 MG/M2, CYCLICAL, ON DAY 2 FOR EACH 28 DAYS
     Route: 065

REACTIONS (5)
  - Myelosuppression [Unknown]
  - Thrombocytosis [Unknown]
  - Thrombocytopenia [Unknown]
  - Leukopenia [Unknown]
  - Anaemia [Unknown]
